FAERS Safety Report 8980142 (Version 1)
Quarter: 2012Q4

REPORT INFORMATION
  Report Type: 
  Country: ES (occurrence: ES)
  Receive Date: 20121221
  Receipt Date: 20121221
  Transmission Date: 20130627
  Serious: Yes (Other)
  Sender: FDA-Public Use
  Company Number: PHHY2012ES117256

PATIENT

DRUGS (2)
  1. DORZOLAMIDE+TIMOLOL [Suspect]
     Route: 064
  2. DORZOLAMIDE+TIMOLOL [Suspect]
     Route: 063

REACTIONS (6)
  - Premature baby [Unknown]
  - Exposure during breast feeding [Unknown]
  - Foetal exposure during pregnancy [Unknown]
  - Caesarean section [None]
  - Foetal growth restriction [None]
  - Maternal drugs affecting foetus [None]
